FAERS Safety Report 6291583-8 (Version None)
Quarter: 2009Q3

REPORT INFORMATION
  Report Type: 
  Country: None (occurrence: None)
  Receive Date: 20090730
  Receipt Date: 20090721
  Transmission Date: 20100115
  Serious: Yes (Hospitalization, Other)
  Sender: FDA-Public Use
  Company Number: PHHY2009BR30201

PATIENT
  Sex: Male
  Weight: 60 kg

DRUGS (3)
  1. TEGRETOL [Suspect]
     Indication: DEPRESSION
     Dosage: 200 MG, BID (LUNCH + DINNER)
     Route: 048
     Dates: start: 20090401
  2. TEGRETOL [Suspect]
     Dosage: 45 TABLETS OF 200MG
     Route: 048
  3. TEGRETOL [Suspect]
     Dosage: 200 MG, BID (LUNCH + DINNER)

REACTIONS (6)
  - ABDOMINAL PAIN [None]
  - ANXIETY [None]
  - DEPRESSION [None]
  - DIZZINESS [None]
  - INTENTIONAL OVERDOSE [None]
  - NAUSEA [None]
